FAERS Safety Report 6368961-1 (Version None)
Quarter: 2009Q3

REPORT INFORMATION
  Report Type: 
  Country: None (occurrence: None)
  Receive Date: 20090922
  Receipt Date: 20090911
  Transmission Date: 20100115
  Serious: Yes (Other)
  Sender: FDA-Public Use
  Company Number: BR-ELI_LILLY_AND_COMPANY-BR200909002883

PATIENT
  Sex: Male
  Weight: 60 kg

DRUGS (3)
  1. HUMULIN N [Suspect]
     Indication: TYPE 2 DIABETES MELLITUS
     Dosage: 10 IU, DAILY (1/D)
     Route: 058
     Dates: start: 20090801, end: 20090101
  2. HUMULIN N [Suspect]
     Dosage: 5 IU, DAILY (1/D)
     Route: 058
     Dates: start: 20090101
  3. ACTOS /BRA/ [Concomitant]
     Indication: DIABETES MELLITUS
     Dosage: 30 MG, DAILY (1/D)
     Route: 065

REACTIONS (2)
  - HYPOGLYCAEMIA [None]
  - HYPOTHERMIA [None]
